FAERS Safety Report 5073941-2 (Version None)
Quarter: 2006Q3

REPORT INFORMATION
  Report Type: 
  Country: None (occurrence: None)
  Receive Date: 20060803
  Receipt Date: 20060731
  Transmission Date: 20061208
  Serious: Yes (Death)
  Sender: FDA-Public Use
  Company Number: 226807

PATIENT
  Age: 62 Year
  Sex: Male
  Weight: 85.3 kg

DRUGS (12)
  1. AVASTIN [Suspect]
     Indication: NON-SMALL CELL LUNG CANCER
     Dosage: SEE IMAGE
     Dates: start: 20060414
  2. AVASTIN [Suspect]
     Dates: start: 20060414
  3. ELOXATIN [Suspect]
     Indication: NON-SMALL CELL LUNG CANCER
     Dates: start: 20060414
  4. ALIMTA [Suspect]
     Indication: NON-SMALL CELL LUNG CANCER
     Dates: start: 20060414
  5. ANTIBIOTICS (ANTIBIOTICS) [Concomitant]
  6. STEROIDS (STEROID NOS) [Concomitant]
  7. OXYGEN (OXYGEN) [Concomitant]
  8. MORPHINE SULFATE DRIP (MORPHINE SULFATE) [Concomitant]
  9. AMARYL [Concomitant]
  10. LORTAB [Concomitant]
  11. XANAX [Concomitant]
  12. INHALER (GENERIC COMPONENT (S) [Concomitant]

REACTIONS (10)
  - ASTHENIA [None]
  - COLD SWEAT [None]
  - DISEASE PROGRESSION [None]
  - FATIGUE [None]
  - GENERAL PHYSICAL HEALTH DETERIORATION [None]
  - HEART RATE INCREASED [None]
  - PLEURAL EFFUSION [None]
  - RALES [None]
  - RESPIRATORY DISTRESS [None]
  - RESPIRATORY FAILURE [None]
